FAERS Safety Report 6517319-0 (Version None)
Quarter: 2009Q4

REPORT INFORMATION
  Report Type: 
  Country: None (occurrence: None)
  Receive Date: 20091223
  Receipt Date: 20091218
  Transmission Date: 20100525
  Serious: Yes (Hospitalization)
  Sender: FDA-Public Use
  Company Number: US-B.I. PHARMACEUTICALS,INC./RIDGEFIELD-2009-BP-14567BP

PATIENT
  Age: 65 Year
  Sex: Female

DRUGS (1)
  1. MELOXICAM [Suspect]

REACTIONS (2)
  - ULCER HAEMORRHAGE [None]
  - VOLUME BLOOD DECREASED [None]
